FAERS Safety Report 16243432 (Version 1)
Quarter: 2019Q2

REPORT INFORMATION
  Report Type: Spontaneous
  Country: US (occurrence: US)
  Receive Date: 20190425
  Receipt Date: 20190425
  Transmission Date: 20190711
  Serious: Yes (Hospitalization)
  Sender: FDA-Public Use
  Company Number: None

PATIENT
  Age: 71 Year
  Sex: Female

DRUGS (4)
  1. TADALAFIL. [Suspect]
     Active Substance: TADALAFIL
     Indication: PULMONARY ARTERIAL HYPERTENSION
     Route: 048
     Dates: start: 20180831
  2. METOPROL, CLONAZEP [Concomitant]
  3. MIRTAZAPINE. [Concomitant]
     Active Substance: MIRTAZAPINE
  4. VITAMIN B12, HYDROCO/APAP [Concomitant]

REACTIONS (2)
  - Headache [None]
  - Oxygen saturation decreased [None]

NARRATIVE: CASE EVENT DATE: 20190422
